FAERS Safety Report 5656267-5 (Version None)
Quarter: 2008Q1

REPORT INFORMATION
  Report Type: 
  Country: None (occurrence: None)
  Receive Date: 20080305
  Receipt Date: 20080220
  Transmission Date: 20080703
  Serious: Yes (Hospitalization)
  Sender: FDA-Public Use
  Company Number: DSJ-2007-10264

PATIENT
  Age: 59 Year
  Sex: Female
  Weight: 60 kg

DRUGS (4)
  1. OLMESARTAN MEDOXOMIL [Suspect]
     Indication: HYPERTENSION
     Dosage: 40 MG (20 MG, 2 IN 1 D), PER ORAL
     Route: 048
     Dates: end: 20071021
  2. MEILAX (ETHYL LOFLAZEPATE) (TABLET) (ETHYL LOFLAZEPATE) [Concomitant]
  3. GASPORT (FAMOTIDINE) (TABLET) (FAMOTIDINE) [Concomitant]
  4. PIROLACTON (TABLET) [Concomitant]

REACTIONS (4)
  - DYSPNOEA [None]
  - LOCALISED OEDEMA [None]
  - SENSATION OF FOREIGN BODY [None]
  - SWOLLEN TONGUE [None]
